FAERS Safety Report 9331758 (Version 1)
Quarter: 2013Q2

REPORT INFORMATION
  Report Type: Spontaneous
  Country: US (occurrence: None)
  Receive Date: 20130603
  Receipt Date: 20130603
  Transmission Date: 20140414
  Serious: Yes (Other)
  Sender: FDA-Public Use
  Company Number: ADE13-011

PATIENT
  Age: 86 Year
  Sex: Female
  Weight: 83 kg

DRUGS (1)
  1. HEPARIN SODIUM [Suspect]
     Indication: CARDIOPULMONARY BYPASS
     Dosage: 55,000 U, TOTAL DOSE, IV
     Route: 042
     Dates: start: 20130522, end: 20130522

REACTIONS (2)
  - Drug effect decreased [None]
  - Product quality issue [None]
